FAERS Safety Report 8796205 (Version 1)
Quarter: 2012Q4

REPORT INFORMATION
  Report Type: 
  Country: DE (occurrence: DE)
  Receive Date: 20120920
  Receipt Date: 20120920
  Transmission Date: 20130627
  Serious: Yes (Congenital Anomaly, Other)
  Sender: FDA-Public Use
  Company Number: DE-PFIZER INC-2012231316

PATIENT

DRUGS (15)
  1. DELIX [Suspect]
     Indication: NEPHROTIC SYNDROME
     Dosage: UNK
     Route: 064
  2. HYDROXYCHLOROQUINE [Suspect]
     Indication: SYSTEMIC LUPUS ERYTHEMATOSUS
     Dosage: UNK
     Route: 064
  3. SIMVASTATIN [Suspect]
     Indication: HYPERCHOLESTEROLAEMIA
     Dosage: UNK
     Route: 064
  4. TOREM [Suspect]
     Indication: NEPHROTIC SYNDROME
     Dosage: UNK
     Route: 064
  5. TACROLIMUS [Suspect]
     Indication: SYSTEMIC LUPUS ERYTHEMATOSUS
     Dosage: 6mg, UNK
     Route: 064
  6. RITUXIMAB [Suspect]
     Indication: SYSTEMIC LUPUS ERYTHEMATOSUS
     Dosage: UNK
     Route: 064
     Dates: end: 201112
  7. CYCLOPHOSPHAMIDE [Concomitant]
     Indication: SYSTEMIC LUPUS ERYTHEMATOSUS
     Dosage: UNK
     Route: 064
  8. CLEXANE [Concomitant]
     Indication: PULMONARY EMBOLISM
     Dosage: UNK
     Route: 064
     Dates: start: 20111214, end: 20120320
  9. PREDNISOLON [Concomitant]
     Dosage: UNK
     Route: 064
     Dates: start: 20111214, end: 20120320
  10. ASS [Concomitant]
     Indication: VENA CAVA THROMBOSIS
     Dosage: UNK
     Route: 064
     Dates: start: 20111214, end: 20120320
  11. PANTOZOL [Concomitant]
     Indication: GASTRITIS PROPHYLAXIS
     Dosage: UNK
     Route: 064
     Dates: start: 20111214, end: 20120320
  12. RASILEZ [Concomitant]
     Indication: HYPERTENSION
     Dosage: UNK
     Route: 064
     Dates: start: 20111214, end: 20120117
  13. SALBUTAMOL [Concomitant]
     Indication: ASTHMA
     Dosage: UNK
     Route: 064
  14. NOVAMINOSULFON [Concomitant]
     Indication: PAIN
     Dosage: UNK
  15. XARELTO [Concomitant]
     Indication: VENA CAVA THROMBOSIS
     Dosage: UNK
     Route: 064

REACTIONS (4)
  - Maternal exposure timing unspecified [Not Recovered/Not Resolved]
  - Ventricular septal defect [Not Recovered/Not Resolved]
  - Truncus arteriosus persistent [Not Recovered/Not Resolved]
  - Abortion induced [None]
